FAERS Safety Report 7121478-9 (Version None)
Quarter: 2010Q4

REPORT INFORMATION
  Report Type: 
  Country: None (occurrence: None)
  Receive Date: 20101124
  Receipt Date: 20101118
  Transmission Date: 20110411
  Serious: Yes (Hospitalization)
  Sender: FDA-Public Use
  Company Number: BE-GENZYME-CLOF-1001321

PATIENT
  Sex: Female
  Weight: 71 kg

DRUGS (1)
  1. EVOLTRA [Suspect]
     Indication: ACUTE LEUKAEMIA
     Route: 042

REACTIONS (2)
  - DYSARTHRIA [None]
  - HEMIPLEGIA [None]
